FAERS Safety Report 20871070 (Version 5)
Quarter: 2023Q4

REPORT INFORMATION
  Report Type: Report from Study
  Country: US (occurrence: US)
  Receive Date: 20220525
  Receipt Date: 20231106
  Transmission Date: 20240109
  Serious: Yes (Other)
  Sender: FDA-Public Use
  Company Number: US-NOVARTISTESTPH-NVSC2022US120313

PATIENT
  Age: 67 Year
  Sex: Female

DRUGS (2)
  1. ILARIS [Suspect]
     Active Substance: CANAKINUMAB
     Indication: Still^s disease
     Dosage: 300 MG, (EVERY 28 DAYS)
     Route: 058
     Dates: start: 20220521
  2. ILARIS [Suspect]
     Active Substance: CANAKINUMAB
     Dosage: 300 MG, QMO
     Route: 058
     Dates: start: 20220617

REACTIONS (8)
  - Still^s disease [Unknown]
  - Condition aggravated [Unknown]
  - Feeling abnormal [Unknown]
  - Eructation [Unknown]
  - Asthenia [Unknown]
  - Nausea [Unknown]
  - Product supply issue [Unknown]
  - SARS-CoV-2 test positive [Unknown]

NARRATIVE: CASE EVENT DATE: 20220521
